FAERS Safety Report 8801880 (Version 3)
Quarter: 2012Q4

REPORT INFORMATION
  Report Type: 
  Country: CO (occurrence: CO)
  Receive Date: 20120921
  Receipt Date: 20121010
  Transmission Date: 20130627
  Serious: Yes (Death)
  Sender: FDA-Public Use
  Company Number: CO-PFIZER INC-2012231000

PATIENT
  Age: 73 Year
  Sex: Male

DRUGS (1)
  1. SUTENT [Suspect]
     Indication: RENAL CANCER
     Dosage: 1x/day
     Dates: start: 20081015, end: 20081030

REACTIONS (4)
  - Disease progression [Fatal]
  - Renal cancer [Fatal]
  - Weight decreased [Not Recovered/Not Resolved]
  - Yellow skin [Not Recovered/Not Resolved]
